FAERS Safety Report 9007845 (Version 2)
Quarter: 2013Q1

REPORT INFORMATION
  Report Type: Spontaneous
  Country: US (occurrence: US)
  Receive Date: 20130111
  Receipt Date: 20130227
  Transmission Date: 20140127
  Serious: Yes (Hospitalization)
  Sender: FDA-Public Use
  Company Number: US-OTSUKA-US-2013-10012

PATIENT
  Age: 57 Year
  Sex: Female
  Weight: 75.28 kg

DRUGS (9)
  1. SAMSCA [Suspect]
     Indication: CHRONIC HEPATIC FAILURE
     Dosage: 30 MG MILLIGRAM(S), UNK
     Route: 048
     Dates: start: 201204, end: 20121214
  2. SAMSCA [Suspect]
     Dosage: 15 MG MILLIGRAM(S), UNK
     Dates: start: 201204, end: 20121214
  3. SAMSCA [Suspect]
     Dosage: UNK
     Dates: start: 20130104
  4. LASIX [Concomitant]
  5. XANAX [Concomitant]
  6. OXYCODONE [Concomitant]
  7. VITAMIN A [Concomitant]
  8. ZINC [Concomitant]
  9. SPIRONOLACTONE [Suspect]
     Indication: PRODUCT USED FOR UNKNOWN INDICATION

REACTIONS (6)
  - Confusional state [Not Recovered/Not Resolved]
  - Fall [Not Recovered/Not Resolved]
  - Ascites [Not Recovered/Not Resolved]
  - Head injury [Not Recovered/Not Resolved]
  - Dysphagia [Not Recovered/Not Resolved]
  - Speech disorder [Not Recovered/Not Resolved]
